FAERS Safety Report 25250944 (Version 1)
Quarter: 2025Q2

REPORT INFORMATION
  Report Type: Spontaneous
  Country: FR (occurrence: FR)
  Receive Date: 20250429
  Receipt Date: 20250429
  Transmission Date: 20250716
  Serious: Yes (Death, Other)
  Sender: Haleon PLC
  Company Number: FR-CHEPLA-2024001096

PATIENT
  Age: 73 Year
  Sex: Male
  Weight: 74 kg

DRUGS (17)
  1. DICLOFENAC [Suspect]
     Active Substance: DICLOFENAC
     Indication: Pain in extremity
     Route: 065
  2. PEMETREXED [Suspect]
     Active Substance: PEMETREXED
     Indication: Non-small cell lung cancer
     Dosage: 935 MG, QD (935 MG BY IV INFUSION OVER 10 MINUTES)
     Route: 042
     Dates: start: 20231215, end: 20231215
  3. POTASSIUM CHLORIDE [Suspect]
     Active Substance: POTASSIUM CHLORIDE
     Indication: Product used for unknown indication
     Route: 065
  4. CARBOPLATIN [Suspect]
     Active Substance: CARBOPLATIN
     Indication: Non-small cell lung cancer
     Dosage: 420 MG, QD (420 MG BY IV INFUSION OVER 30 MINUTES)
     Route: 042
     Dates: start: 20231215, end: 20231215
  5. METHYLPREDNISOLONE [Suspect]
     Active Substance: METHYLPREDNISOLONE
     Indication: Superior vena cava syndrome
     Dosage: 160 MG, QD (IM-IV)
     Route: 042
     Dates: start: 20231130, end: 20231207
  6. KEYTRUDA [Suspect]
     Active Substance: PEMBROLIZUMAB
     Indication: Non-small cell lung cancer
     Dosage: 200 MG, QD (BY IV INFUSION OVER 30 MINUTES)
     Route: 042
     Dates: start: 20231215, end: 20231215
  7. PREDNISOLONE METASULFOBENZOATE SODIUM [Suspect]
     Active Substance: PREDNISOLONE SODIUM METAZOATE
     Indication: Superior vena cava syndrome
     Dosage: 120 MG, QD
     Route: 048
     Dates: start: 20231215, end: 20231216
  8. PREDNISOLONE METASULFOBENZOATE SODIUM [Suspect]
     Active Substance: PREDNISOLONE SODIUM METAZOATE
     Dosage: 60 MG, QD
     Route: 048
     Dates: start: 20231217, end: 20231219
  9. FUROSEMIDE [Suspect]
     Active Substance: FUROSEMIDE
     Indication: Product used for unknown indication
     Route: 065
  10. SITAGLIPTIN [Suspect]
     Active Substance: SITAGLIPTIN
     Indication: Product used for unknown indication
     Route: 065
  11. BROMAZEPAM [Suspect]
     Active Substance: BROMAZEPAM
     Indication: Product used for unknown indication
     Route: 065
  12. ENTRESTO [Suspect]
     Active Substance: SACUBITRIL\VALSARTAN
     Indication: Product used for unknown indication
     Route: 065
  13. DAPAGLIFLOZIN [Suspect]
     Active Substance: DAPAGLIFLOZIN
     Indication: Product used for unknown indication
     Route: 065
  14. DICLOFENAC [Suspect]
     Active Substance: DICLOFENAC
     Indication: Product used for unknown indication
     Dosage: 75 MG, QD (GASTRO-RESISTANT COATED TABLET, 3 TAKEN IN THE EVENINIG)
     Route: 048
     Dates: start: 20231213, end: 20231220
  15. KARDEGIC [Suspect]
     Active Substance: ASPIRIN DL-LYSINE
     Indication: Myocardial ischaemia
     Dosage: 75 MG, QD
     Route: 048
     Dates: start: 20231201, end: 20231221
  16. PREDNISONE [Suspect]
     Active Substance: PREDNISONE
     Indication: Superior vena cava syndrome
     Dosage: 70 MG, QD (FOR ONE MONTH)
     Route: 048
     Dates: start: 20231207, end: 20231213
  17. BISOPROLOL [Suspect]
     Active Substance: BISOPROLOL
     Indication: Product used for unknown indication
     Route: 065

REACTIONS (10)
  - Duodenal perforation [Fatal]
  - Hypotension [Unknown]
  - Renal failure [Unknown]
  - Hepatic cytolysis [Unknown]
  - Livedo reticularis [Unknown]
  - Treatment failure [Unknown]
  - Shock haemorrhagic [Unknown]
  - Multiple organ dysfunction syndrome [Fatal]
  - Peritonitis [Fatal]
  - Septic shock [Fatal]

NARRATIVE: CASE EVENT DATE: 20201221
